FAERS Safety Report 8305371-1 (Version None)
Quarter: 2012Q2

REPORT INFORMATION
  Report Type: 
  Country: None (occurrence: None)
  Receive Date: 20120423
  Receipt Date: 20120411
  Transmission Date: 20120825
  Serious: Yes (Death, Life-Threatening, Hospitalization)
  Sender: FDA-Public Use
  Company Number: AU-CELGENEUS-008-50794-12012767

PATIENT
  Sex: Female
  Weight: 66.2 kg

DRUGS (15)
  1. VIDAZA [Suspect]
     Route: 065
     Dates: start: 20120103, end: 20120106
  2. TIMENTIN [Concomitant]
     Indication: LUNG INFECTION
     Dosage: 12.4 GRAM
     Route: 041
     Dates: start: 20111231, end: 20120110
  3. SLOW-K [Concomitant]
     Dosage: 4
     Route: 048
     Dates: start: 20120109, end: 20120119
  4. MIDAZOLAM [Concomitant]
     Route: 041
     Dates: start: 20120104, end: 20120104
  5. ACETAMINOPHEN [Concomitant]
     Dosage: 4 GRAM
     Route: 048
     Dates: start: 20120101, end: 20120107
  6. MEPERIDINE HCL [Concomitant]
     Indication: PREMEDICATION
     Route: 041
     Dates: start: 20120104, end: 20120104
  7. OXYCODONE HCL [Concomitant]
     Indication: PAIN
     Route: 048
     Dates: start: 20120101, end: 20120120
  8. NITROGLYCERIN [Concomitant]
     Route: 058
     Dates: start: 20120107, end: 20120107
  9. MOVIPREP [Concomitant]
     Indication: CONSTIPATION
     Route: 048
     Dates: start: 20120102, end: 20120213
  10. HYDROCORTISONE [Concomitant]
     Indication: PREMEDICATION
     Route: 041
     Dates: start: 20120104, end: 20120104
  11. MAXOLON [Concomitant]
     Indication: PREMEDICATION
     Route: 041
     Dates: start: 20120104, end: 20120104
  12. GENTAMICIN [Concomitant]
     Indication: LUNG INFECTION
     Dosage: 240 MILLIGRAM
     Route: 041
     Dates: start: 20111231, end: 20120109
  13. VIDAZA [Suspect]
     Route: 065
     Dates: start: 20120109, end: 20120111
  14. NAVOBAN [Concomitant]
     Indication: NAUSEA
     Route: 048
     Dates: start: 20120103, end: 20120111
  15. VITAMIN K TAB [Concomitant]
     Route: 041
     Dates: start: 20120111, end: 20120111

REACTIONS (2)
  - ACUTE MYELOID LEUKAEMIA [None]
  - CATHETER SITE HAEMORRHAGE [None]
